FAERS Safety Report 22017488 (Version 1)
Quarter: 2023Q1

REPORT INFORMATION
  Report Type: Spontaneous
  Country: IT (occurrence: IT)
  Receive Date: 20230221
  Receipt Date: 20230221
  Transmission Date: 20230418
  Serious: Yes (Life-Threatening, Hospitalization, Other)
  Sender: FDA-Public Use
  Company Number: IT-PFIZER INC-PV202300024444

PATIENT
  Age: 73 Year
  Sex: Male

DRUGS (11)
  1. ALBUMIN HUMAN [Suspect]
     Active Substance: ALBUMIN HUMAN
     Indication: Blood volume expansion
     Dosage: 20 GRAM, QD
     Route: 065
  2. ALBUMIN HUMAN [Suspect]
     Active Substance: ALBUMIN HUMAN
     Indication: Hepatorenal syndrome
  3. ALBUMIN HUMAN [Suspect]
     Active Substance: ALBUMIN HUMAN
     Indication: Spontaneous bacterial peritonitis
  4. CEFOTAXIME [Suspect]
     Active Substance: CEFOTAXIME SODIUM
     Indication: Portal vein thrombosis
     Dosage: 4 GRAM, QD
     Route: 042
  5. CEFOTAXIME [Suspect]
     Active Substance: CEFOTAXIME SODIUM
     Indication: Ascites
  6. CEFOTAXIME [Suspect]
     Active Substance: CEFOTAXIME SODIUM
     Indication: Spontaneous bacterial peritonitis
  7. CEFOTAXIME [Suspect]
     Active Substance: CEFOTAXIME SODIUM
     Indication: Antibiotic therapy
  8. CEFOTAXIME [Suspect]
     Active Substance: CEFOTAXIME SODIUM
     Indication: Hepatorenal syndrome
  9. SODIUM CHLORIDE [Concomitant]
     Active Substance: SODIUM CHLORIDE
     Indication: Blood volume expansion
     Dosage: 1.5 LITER
     Route: 065
  10. TERLIPRESSIN [Concomitant]
     Active Substance: TERLIPRESSIN
     Indication: Hepatorenal syndrome
     Dosage: 3 MILLIGRAM, QD
     Route: 040
  11. TERLIPRESSIN [Concomitant]
     Active Substance: TERLIPRESSIN
     Indication: Spontaneous bacterial peritonitis

REACTIONS (1)
  - Drug ineffective [Unknown]
